FAERS Safety Report 19612197 (Version 1)
Quarter: 2021Q3

REPORT INFORMATION
  Report Type: Spontaneous
  Country: FR (occurrence: FR)
  Receive Date: 20210727
  Receipt Date: 20210727
  Transmission Date: 20211014
  Serious: Yes (Hospitalization, Other)
  Sender: FDA-Public Use
  Company Number: FR-AUROBINDO-AUR-APL-2021-031715

PATIENT
  Age: 38 Year
  Sex: Male
  Weight: 115 kg

DRUGS (4)
  1. DAPTOMYCINE [Suspect]
     Active Substance: DAPTOMYCIN
     Indication: OSTEITIS
     Dosage: 1 GRAM
     Route: 042
     Dates: start: 20210623, end: 20210626
  2. AUGMENTIN [Suspect]
     Active Substance: AMOXICILLIN\CLAVULANATE POTASSIUM
     Indication: OSTEITIS
     Dosage: 3 GRAM
     Route: 048
     Dates: start: 20210615, end: 20210622
  3. KETOPROFENE [Concomitant]
     Active Substance: KETOPROFEN
     Indication: ANALGESIC INTERVENTION SUPPORTIVE THERAPY
     Dosage: 200 MILLIGRAM
     Route: 048
     Dates: start: 20210615, end: 20210622
  4. MEROPENEM. [Suspect]
     Active Substance: MEROPENEM
     Indication: OSTEITIS
     Dosage: 3 GRAM
     Route: 042
     Dates: start: 20210622, end: 20210624

REACTIONS (1)
  - Acute generalised exanthematous pustulosis [Recovering/Resolving]

NARRATIVE: CASE EVENT DATE: 20210624
